FAERS Safety Report 24081208 (Version 1)
Quarter: 2024Q3

REPORT INFORMATION
  Report Type: Spontaneous
  Country: US (occurrence: US)
  Receive Date: 20240711
  Receipt Date: 20240711
  Transmission Date: 20241016
  Serious: No
  Sender: KRAMER LABORATORIES
  Company Number: US-KRAMERLABS-2024-US-007657

PATIENT
  Age: 58 Year
  Sex: Female

DRUGS (11)
  1. KETOCONAZOLE [Suspect]
     Active Substance: KETOCONAZOLE
     Indication: Product used for unknown indication
     Route: 061
  2. VOSOL HC [Concomitant]
     Active Substance: ACETIC ACID\HYDROCORTISONE
  3. ELIDEL [Concomitant]
     Active Substance: PIMECROLIMUS
  4. triamcinolone acetonide topical 0.025% cream [Concomitant]
  5. MELOXICAM [Concomitant]
     Active Substance: MELOXICAM
  6. BACLOFEN [Concomitant]
     Active Substance: BACLOFEN
  7. LEVOTHYROXINE [Concomitant]
     Active Substance: LEVOTHYROXINE\LEVOTHYROXINE SODIUM
  8. FLUOXETINE [Concomitant]
     Active Substance: FLUOXETINE HYDROCHLORIDE
  9. CLOBETASOL [Concomitant]
     Active Substance: CLOBETASOL
  10. LIDEX [Concomitant]
     Active Substance: FLUOCINONIDE
  11. Triamcinolone Acetonide topical 0.5% cream mixed with Ketoconazole cre [Concomitant]

REACTIONS (1)
  - Drug ineffective [Unknown]
